FAERS Safety Report 5751536-2 (Version None)
Quarter: 2008Q2

REPORT INFORMATION
  Report Type: 
  Country: None (occurrence: None)
  Receive Date: 20080527
  Receipt Date: 20080514
  Transmission Date: 20081010
  Serious: Yes (Other)
  Sender: FDA-Public Use
  Company Number: 2008012627

PATIENT
  Age: 73 Year
  Sex: Female
  Weight: 68 kg

DRUGS (4)
  1. ZYRTEC [Suspect]
     Indication: HYPERSENSITIVITY
     Dosage: 1 IR TABLET PER DAY (10 MG, 1 IN 1 D), ORAL
     Route: 048
     Dates: start: 20080513, end: 20080514
  2. ATENOL (ATENOLOL) [Concomitant]
  3. GLIMEPIRIDE [Concomitant]
  4. BENICAR [Concomitant]

REACTIONS (2)
  - AMNESIA [None]
  - PYREXIA [None]
